FAERS Safety Report 6719318-2 (Version None)
Quarter: 2010Q2

REPORT INFORMATION
  Report Type: 
  Country: None (occurrence: None)
  Receive Date: 20100511
  Receipt Date: 20100428
  Transmission Date: 20101027
  Serious: Yes (Hospitalization, Other)
  Sender: FDA-Public Use
  Company Number: PHHY2010IE06308

PATIENT
  Sex: Female

DRUGS (2)
  1. CLOZARIL [Suspect]
     Indication: SCHIZOPHRENIA
     Dosage: UNK
     Dates: start: 20011127
  2. HALOPERIDOL [Concomitant]
     Indication: PSYCHOTIC DISORDER
     Dosage: UNK
     Dates: start: 20100210, end: 20100211

REACTIONS (10)
  - ANXIETY [None]
  - BLADDER DISORDER [None]
  - BLOOD UREA INCREASED [None]
  - CHEST PAIN [None]
  - LIVER FUNCTION TEST ABNORMAL [None]
  - MALAISE [None]
  - PNEUMONIA [None]
  - SEPSIS [None]
  - URINE ELECTROLYTES INCREASED [None]
  - WHITE BLOOD CELL COUNT INCREASED [None]
